FAERS Safety Report 13654895 (Version 1)
Quarter: 2017Q2

REPORT INFORMATION
  Report Type: Spontaneous
  Country: CA (occurrence: CA)
  Receive Date: 20170615
  Receipt Date: 20170615
  Transmission Date: 20170830
  Serious: Yes (Other)
  Sender: FDA-Public Use
  Company Number: CA-TEVA-777859ACC

PATIENT
  Sex: Male
  Weight: 64 kg

DRUGS (5)
  1. MERCAPTOPURINE. [Concomitant]
     Active Substance: MERCAPTOPURINE
  2. VINCRISTINE SULFATE INJECTION USP [Suspect]
     Active Substance: VINCRISTINE SULFATE
     Route: 065
  3. METHOTREXATE INJECTION, USP [Concomitant]
     Active Substance: METHOTREXATE
  4. DOXORUBICIN HYDROCHLORIDE INJECTION [Concomitant]
     Active Substance: DOXORUBICIN HYDROCHLORIDE
  5. PREDNISONE. [Suspect]
     Active Substance: PREDNISONE
     Indication: LYMPHOMA
     Route: 048

REACTIONS (1)
  - Acne [Unknown]
